FAERS Safety Report 23762271 (Version 1)
Quarter: 2024Q2

REPORT INFORMATION
  Report Type: Spontaneous
  Country: US (occurrence: None)
  Receive Date: 20240418
  Receipt Date: 20240418
  Transmission Date: 20240715
  Serious: Yes (Hospitalization)
  Sender: FDA-Public Use
  Company Number: None

PATIENT
  Age: 11 Day
  Sex: Female
  Weight: 2.06 kg

DRUGS (1)
  1. NIRSEVIMAB [Suspect]
     Active Substance: NIRSEVIMAB
     Dosage: 50 MG NCE INTRAMUSCULAR
     Route: 030
     Dates: start: 20240206

REACTIONS (1)
  - Enteral nutrition [None]

NARRATIVE: CASE EVENT DATE: 20240206
